FAERS Safety Report 23301094 (Version 2)
Quarter: 2024Q1

REPORT INFORMATION
  Report Type: Spontaneous
  Country: CA (occurrence: CA)
  Receive Date: 20231215
  Receipt Date: 20240208
  Transmission Date: 20240410
  Serious: Yes (Other)
  Sender: FDA-Public Use
  Company Number: CA-PFIZER INC-202201346061

PATIENT
  Age: 14 Year
  Sex: Male

DRUGS (2)
  1. NGENLA [Suspect]
     Active Substance: SOMATROGON-GHLA
     Indication: Growth hormone deficiency
     Dosage: 38 MG, WEEKLY
     Route: 058
     Dates: start: 20221108
  2. NGENLA [Suspect]
     Active Substance: SOMATROGON-GHLA
     Dosage: 19 MG (PRESCRIBED DOSE IS 38 MG)
     Route: 058
     Dates: start: 20230320

REACTIONS (4)
  - Knee operation [Unknown]
  - Injection site pain [Not Recovered/Not Resolved]
  - Product administration error [Unknown]
  - Underdose [Unknown]

NARRATIVE: CASE EVENT DATE: 20230320
